FAERS Safety Report 7119246-7 (Version None)
Quarter: 2010Q4

REPORT INFORMATION
  Report Type: 
  Country: None (occurrence: None)
  Receive Date: 20101028
  Receipt Date: 20100816
  Transmission Date: 20110411
  Serious: Yes (Hospitalization)
  Sender: FDA-Public Use
  Company Number: A-US2010-39196

PATIENT
  Age: 43 Year
  Sex: Female

DRUGS (7)
  1. EPOPROSTENOL SODIUM [Suspect]
     Indication: PULMONARY ARTERIAL HYPERTENSION
     Dosage: 60, IV DRIP
     Route: 041
     Dates: start: 20100702
  2. TRACLEER [Concomitant]
  3. SILDENAFIL CITRATE [Concomitant]
  4. WARFARIN SODIUM [Concomitant]
  5. DIURETICS [Concomitant]
  6. LEXAPRO [Concomitant]
  7. OXYGEN (OXYGEN) [Concomitant]

REACTIONS (1)
  - DEVICE MALFUNCTION [None]
